FAERS Safety Report 19687466 (Version 1)
Quarter: 2021Q3

REPORT INFORMATION
  Report Type: Spontaneous
  Country: CN (occurrence: CN)
  Receive Date: 20210812
  Receipt Date: 20210812
  Transmission Date: 20211014
  Serious: Yes (Other)
  Sender: FDA-Public Use
  Company Number: CN-ROCHE-2887522

PATIENT
  Age: 60 Year
  Sex: Female

DRUGS (19)
  1. HERCEPTIN [Suspect]
     Active Substance: TRASTUZUMAB
     Dosage: TRASTUZUMAB + PERTUZUMAB + DOCETAXEL
     Route: 065
     Dates: start: 20200403, end: 20200721
  2. PACLITAXEL. [Concomitant]
     Active Substance: PACLITAXEL
     Indication: INVASIVE DUCTAL BREAST CARCINOMA
     Dosage: TRASTUZUMAB +PACLITAXEL
     Dates: start: 20160425
  3. PACLITAXEL. [Concomitant]
     Active Substance: PACLITAXEL
     Dosage: TRASTUZUMAB +CYCLOPHOSPHAMIDE  +PACLITAXEL
     Dates: start: 20160720, end: 20160826
  4. HERCEPTIN [Suspect]
     Active Substance: TRASTUZUMAB
     Indication: INVASIVE DUCTAL BREAST CARCINOMA
     Dosage: TRASTUZUMAB 6 MG/KG (THE FIRST 8 MG/KG) +PACLITAXEL
     Route: 065
     Dates: start: 20160425
  5. LAPATINIB [Concomitant]
     Active Substance: LAPATINIB
     Indication: INVASIVE DUCTAL BREAST CARCINOMA
     Dosage: LAPATINIB  +FLUOROURACIL
     Dates: start: 20171219, end: 201811
  6. ETOPOSIDE. [Concomitant]
     Active Substance: ETOPOSIDE
     Indication: INVASIVE DUCTAL BREAST CARCINOMA
     Dosage: PYROTINIB + ETOPOSIDE CAPSULES
     Dates: start: 20190611, end: 20190624
  7. HERCEPTIN [Suspect]
     Active Substance: TRASTUZUMAB
     Dosage: TRASTUZUMAB +CYCLOPHOSPHAMIDE
     Route: 065
     Dates: start: 20160829, end: 20161014
  8. HERCEPTIN [Suspect]
     Active Substance: TRASTUZUMAB
     Dosage: TRASTUZUMAB
     Route: 065
     Dates: start: 20181217, end: 201906
  9. HERCEPTIN [Suspect]
     Active Substance: TRASTUZUMAB
     Dosage: TRASTUZUMAB + PERTUZUMAB
     Route: 065
     Dates: end: 20201017
  10. HERCEPTIN [Suspect]
     Active Substance: TRASTUZUMAB
     Dosage: TRASTUZUMAB
     Route: 065
     Dates: start: 2020
  11. KADCYLA [Suspect]
     Active Substance: ADO-TRASTUZUMAB EMTANSINE
     Indication: INVASIVE DUCTAL BREAST CARCINOMA
     Dosage: TRASTUZUMAB EMTANSINE
     Route: 065
     Dates: start: 20210428
  12. CYCLOPHOSPHAMIDE. [Concomitant]
     Active Substance: CYCLOPHOSPHAMIDE
     Indication: INVASIVE DUCTAL BREAST CARCINOMA
     Dosage: TRASTUZUMAB +CYCLOPHOSPHAMIDE TABLETS
     Route: 048
     Dates: start: 201611, end: 201711
  13. DOCETAXEL. [Concomitant]
     Active Substance: DOCETAXEL
     Indication: INVASIVE DUCTAL BREAST CARCINOMA
     Dosage: THP
     Dates: start: 20200403, end: 20200721
  14. HERCEPTIN [Suspect]
     Active Substance: TRASTUZUMAB
     Dosage: TRASTUZUMAB +CYCLOPHOSPHAMIDE  +PACLITAXEL
     Route: 065
     Dates: start: 20160720, end: 20160826
  15. PERJETA [Suspect]
     Active Substance: PERTUZUMAB
     Indication: INVASIVE DUCTAL BREAST CARCINOMA
     Dosage: THP
     Route: 065
     Dates: start: 20200403, end: 20200721
  16. HERCEPTIN [Suspect]
     Active Substance: TRASTUZUMAB
     Dosage: TRASTUZUMAB +CYCLOPHOSPHAMIDE TABLETS
     Route: 065
     Dates: start: 201611, end: 201711
  17. PERJETA [Suspect]
     Active Substance: PERTUZUMAB
     Dosage: HP
     Route: 065
     Dates: start: 2020
  18. FLUOROURACIL. [Concomitant]
     Active Substance: FLUOROURACIL
     Indication: INVASIVE DUCTAL BREAST CARCINOMA
     Dosage: LAPATINIB  +FLUOROURACIL
     Dates: start: 20171219, end: 201811
  19. PYROTINIB [Concomitant]
     Active Substance: PYROTINIB
     Indication: INVASIVE DUCTAL BREAST CARCINOMA
     Dosage: PYROTINIB + ETOPOSIDE CAPSULES
     Dates: start: 20190611, end: 20190624

REACTIONS (4)
  - Gastrointestinal disorder [Unknown]
  - Myelosuppression [Unknown]
  - Diarrhoea [Unknown]
  - Asthenia [Unknown]
